FAERS Safety Report 4928529-8 (Version None)
Quarter: 2006Q1

REPORT INFORMATION
  Report Type: 
  Country: None (occurrence: None)
  Receive Date: 20060223
  Receipt Date: 20060217
  Transmission Date: 20060701
  Serious: Yes (Other)
  Sender: FDA-Public Use
  Company Number: 200610248BYL

PATIENT
  Age: 85 Year
  Sex: Female

DRUGS (2)
  1. AVELOX [Suspect]
     Indication: PHARYNGITIS
     Dosage: 400 MG, QD, ORAL
     Route: 048
     Dates: start: 20060206, end: 20060208
  2. MAOBUBUSHISAISHINTOU [Concomitant]

REACTIONS (1)
  - RHABDOMYOLYSIS [None]
